FAERS Safety Report 16022374 (Version 4)
Quarter: 2021Q1

REPORT INFORMATION
  Report Type: Report from Study
  Country: BR (occurrence: BR)
  Receive Date: 20190301
  Receipt Date: 20210112
  Transmission Date: 20210419
  Serious: Yes (Other)
  Sender: FDA-Public Use
  Company Number: PHHY2019BR045398

PATIENT
  Age: 54 Year
  Sex: Female
  Weight: 54 kg

DRUGS (4)
  1. COSENTYX [Suspect]
     Active Substance: SECUKINUMAB
     Dosage: UNK UNK, UNKNOWN
     Route: 058
     Dates: start: 20190919
  2. COSENTYX [Suspect]
     Active Substance: SECUKINUMAB
     Dosage: UNK UNK, UNKNOWN
     Route: 065
     Dates: start: 20200101
  3. COSENTYX [Suspect]
     Active Substance: SECUKINUMAB
     Dosage: 300 MG, UNKNOWN
     Route: 065
     Dates: start: 20201019
  4. COSENTYX [Suspect]
     Active Substance: SECUKINUMAB
     Indication: PSORIATIC ARTHROPATHY
     Dosage: 300 MG, QMO
     Route: 058
     Dates: start: 20180503

REACTIONS (19)
  - Illness [Unknown]
  - Renal pain [Recovering/Resolving]
  - Dysuria [Unknown]
  - Confusional state [Unknown]
  - Stress [Unknown]
  - Renal colic [Unknown]
  - Psoriatic arthropathy [Not Recovered/Not Resolved]
  - Fatigue [Unknown]
  - Abdominal pain lower [Unknown]
  - Pain [Not Recovered/Not Resolved]
  - Psoriasis [Not Recovered/Not Resolved]
  - Product dose omission issue [Unknown]
  - Skin lesion [Not Recovered/Not Resolved]
  - Nephrolithiasis [Unknown]
  - Chromaturia [Unknown]
  - Cognitive disorder [Unknown]
  - Mobility decreased [Not Recovered/Not Resolved]
  - Hypokinesia [Not Recovered/Not Resolved]
  - Wound [Not Recovered/Not Resolved]

NARRATIVE: CASE EVENT DATE: 201806
